FAERS Safety Report 8895665 (Version 2)
Quarter: 2012Q4

REPORT INFORMATION
  Report Type: 
  Country: JP (occurrence: JP)
  Receive Date: 20121108
  Receipt Date: 20121220
  Transmission Date: 20130627
  Serious: Yes (Other)
  Sender: FDA-Public Use
  Company Number: JP-OTSUKA-JP-2012-16728

PATIENT
  Age: 71 Year
  Sex: Male

DRUGS (3)
  1. PLETAAL [Suspect]
     Indication: CEREBELLAR INFARCTION
     Dosage: UNK
     Route: 048
  2. PLETAAL [Suspect]
     Dosage: UNK
     Route: 048
  3. ASPIRIN [Concomitant]
     Indication: CEREBELLAR INFARCTION
     Dosage: UNK
     Route: 065

REACTIONS (3)
  - Cerebral infarction [Unknown]
  - Blue toe syndrome [Unknown]
  - Renal impairment [Unknown]
